FAERS Safety Report 8439749-2 (Version None)
Quarter: 2012Q2

REPORT INFORMATION
  Report Type: 
  Country: None (occurrence: None)
  Receive Date: 20120323
  Receipt Date: 20110531
  Transmission Date: 20120825
  Serious: Yes (Other)
  Sender: FDA-Public Use
  Company Number: 163-21880-11060069

PATIENT
  Age: 66 Year
  Sex: Male

DRUGS (6)
  1. DEXAMETHASONE [Concomitant]
  2. REVLIMID [Suspect]
     Indication: MULTIPLE MYELOMA
     Dosage: 10 MG, DAILY X 21 DAYS, PO 5 MG, 1 IN 1 D, PO
     Route: 048
     Dates: start: 20090401
  3. REVLIMID [Suspect]
     Indication: MULTIPLE MYELOMA
     Dosage: 10 MG, DAILY X 21 DAYS, PO 5 MG, 1 IN 1 D, PO
     Route: 048
     Dates: start: 20091001
  4. ATIVAN [Concomitant]
  5. MULTIVITAMIN [Concomitant]
  6. QUERCETIN (QUERCETIN) [Concomitant]

REACTIONS (2)
  - TACHYCARDIA [None]
  - PALPITATIONS [None]
